FAERS Safety Report 8203776-0 (Version None)
Quarter: 2012Q1

REPORT INFORMATION
  Report Type: 
  Country: None (occurrence: None)
  Receive Date: 20120313
  Receipt Date: 20120305
  Transmission Date: 20120608
  Serious: Yes (Hospitalization, Other)
  Sender: FDA-Public Use
  Company Number: US-BAYER-2011-122312

PATIENT
  Age: 22 Year
  Sex: Female
  Weight: 93 kg

DRUGS (9)
  1. ZOSYN [Concomitant]
  2. AZITHROMYCIN [Concomitant]
  3. AUGMENTIN '125' [Concomitant]
  4. YAZ [Suspect]
     Indication: OVARIAN CYST
     Dosage: UNK
     Dates: start: 20090831, end: 20091203
  5. TRAMADOL HCL [Concomitant]
     Indication: PAIN
     Dosage: 50 MG
  6. LEVAQUIN [Concomitant]
  7. ADDERALL 5 [Concomitant]
     Indication: ATTENTION DEFICIT/HYPERACTIVITY DISORDER
     Dosage: 30 MG
     Dates: start: 20090501, end: 20110201
  8. YAZ [Suspect]
     Indication: CONTRACEPTION
     Dosage: UNK
     Dates: start: 20070101, end: 20070301
  9. VANCOMYCIN [Concomitant]

REACTIONS (3)
  - INJURY [None]
  - LUNG CONSOLIDATION [None]
  - PULMONARY EMBOLISM [None]
